FAERS Safety Report 6488423-0 (Version None)
Quarter: 2009Q4

REPORT INFORMATION
  Report Type: 
  Country: None (occurrence: None)
  Receive Date: 20091210
  Receipt Date: 20091126
  Transmission Date: 20100525
  Serious: Yes (Hospitalization, Other)
  Sender: FDA-Public Use
  Company Number: GB-MYLANLABS-2009S1017301

PATIENT
  Age: 42 Year
  Sex: Female

DRUGS (6)
  1. ACETAMINOPHEN WITH PROPOXYPHENE HCL TAB [Suspect]
     Indication: DRUG USE FOR UNKNOWN INDICATION
  2. DICLOFENAC [Suspect]
     Indication: DRUG USE FOR UNKNOWN INDICATION
  3. METFORMIN HCL [Suspect]
     Indication: DRUG USE FOR UNKNOWN INDICATION
  4. TEMAZEPAM [Suspect]
     Indication: DRUG USE FOR UNKNOWN INDICATION
  5. NORTRIPTYLINE [Suspect]
     Indication: DRUG USE FOR UNKNOWN INDICATION
  6. RIZATRIPTAN BENZOATE [Suspect]
     Indication: DRUG USE FOR UNKNOWN INDICATION

REACTIONS (7)
  - DIARRHOEA [None]
  - DUODENAL ULCER [None]
  - GASTRITIS [None]
  - GASTROINTESTINAL DISORDER [None]
  - REFLUX OESOPHAGITIS [None]
  - VOMITING [None]
  - WEIGHT DECREASED [None]
